FAERS Safety Report 8814613 (Version 4)
Quarter: 2012Q4

REPORT INFORMATION
  Report Type: Report from Study
  Country: US (occurrence: US)
  Receive Date: 20120928
  Receipt Date: 20121205
  Transmission Date: 20130627
  Serious: Yes (Hospitalization)
  Sender: FDA-Public Use
  Company Number: US-JNJFOC-20120911133

PATIENT
  Age: 18 Year
  Sex: Female

DRUGS (6)
  1. REMICADE [Suspect]
     Indication: CROHN^S DISEASE
     Route: 042
     Dates: start: 20091125, end: 20100113
  2. ZOFRAN [Concomitant]
  3. VITAMIN D [Concomitant]
  4. PREVACID [Concomitant]
  5. MIRALAX [Concomitant]
  6. GAS-X [Concomitant]

REACTIONS (1)
  - Abdominal pain [Recovered/Resolved]
